FAERS Safety Report 5707461-6 (Version None)
Quarter: 2008Q2

REPORT INFORMATION
  Report Type: 
  Country: None (occurrence: None)
  Receive Date: 20080416
  Receipt Date: 20080414
  Transmission Date: 20081010
  Serious: Yes (Other)
  Sender: FDA-Public Use
  Company Number: PHNU2007DE04132

PATIENT
  Sex: Female

DRUGS (3)
  1. ZOMETA [Suspect]
     Indication: METASTASES TO BONE
     Dosage: 4 MG, QMO
     Route: 042
     Dates: start: 20031101, end: 20070901
  2. NAVELBINE [Concomitant]
     Dates: start: 20061201
  3. HERCEPTIN [Concomitant]
     Dates: start: 20061201

REACTIONS (2)
  - OSTEONECROSIS [None]
  - SEQUESTRECTOMY [None]
